FAERS Safety Report 7513470-7 (Version None)
Quarter: 2011Q2

REPORT INFORMATION
  Report Type: 
  Country: None (occurrence: None)
  Receive Date: 20110531
  Receipt Date: 20110520
  Transmission Date: 20111010
  Serious: Yes (Hospitalization, Other)
  Sender: FDA-Public Use
  Company Number: US-ASTRAZENECA-2011SE31550

PATIENT
  Age: 881 Month
  Sex: Female

DRUGS (2)
  1. TOPROL-XL [Suspect]
     Route: 048
  2. NEXIUM [Suspect]
     Route: 048

REACTIONS (6)
  - MENTAL DISORDER [None]
  - CARDIAC OPERATION [None]
  - APPARENT DEATH [None]
  - MALAISE [None]
  - OESOPHAGEAL DISORDER [None]
  - MYOCARDIAL INFARCTION [None]
